FAERS Safety Report 8430243-1 (Version None)
Quarter: 2012Q2

REPORT INFORMATION
  Report Type: 
  Country: None (occurrence: None)
  Receive Date: 20120606
  Receipt Date: 20120606
  Transmission Date: 20120825
  Serious: Yes (Other)
  Sender: FDA-Public Use
  Company Number: None

PATIENT
  Age: 50 Year
  Sex: Female

DRUGS (1)
  1. STELARA [Suspect]
     Dosage: 90MG Q 12 WEEKS SUNCUTANEOUS
     Route: 058

REACTIONS (2)
  - URTICARIA [None]
  - OSTEOMYELITIS [None]
